FAERS Safety Report 9053779 (Version 1)
Quarter: 2013Q1

REPORT INFORMATION
  Report Type: Spontaneous
  Country: US (occurrence: US)
  Receive Date: 20130207
  Receipt Date: 20130207
  Transmission Date: 20140127
  Serious: Yes (Other)
  Sender: FDA-Public Use
  Company Number: US-GLAXOSMITHKLINE-A0832250A

PATIENT
  Age: 63 Year
  Sex: Male

DRUGS (2)
  1. AVANDIA [Suspect]
     Indication: DIABETES MELLITUS
     Dosage: 4MG TWICE PER DAY
     Route: 048
     Dates: start: 200404, end: 200704
  2. NAPROXEN [Concomitant]

REACTIONS (4)
  - Heart injury [Not Recovered/Not Resolved]
  - Blindness [Unknown]
  - Cardiac failure congestive [Unknown]
  - Macular oedema [Unknown]
